FAERS Safety Report 7998232-9 (Version None)
Quarter: 2011Q4

REPORT INFORMATION
  Report Type: 
  Country: None (occurrence: None)
  Receive Date: 20111221
  Receipt Date: 20110503
  Transmission Date: 20120403
  Serious: No
  Sender: FDA-Public Use
  Company Number: US-GLAXOSMITHKLINE-A0925587A

PATIENT
  Age: 61 Year
  Sex: Female

DRUGS (7)
  1. LOTENSIN [Concomitant]
  2. NORVASC [Concomitant]
  3. LOVAZA [Suspect]
     Indication: BLOOD TRIGLYCERIDES INCREASED
     Dosage: 2CAP TWICE PER DAY
     Route: 048
     Dates: start: 20110201, end: 20110301
  4. VITAMIN D [Concomitant]
  5. PRILOSEC [Concomitant]
  6. VITAMIN E [Concomitant]
  7. CALCIUM [Concomitant]

REACTIONS (1)
  - ABDOMINAL PAIN UPPER [None]
